FAERS Safety Report 7867518-0 (Version None)
Quarter: 2011Q4

REPORT INFORMATION
  Report Type: 
  Country: None (occurrence: None)
  Receive Date: 20111028
  Receipt Date: 20111018
  Transmission Date: 20120403
  Serious: Yes (Death, Hospitalization, Other)
  Sender: FDA-Public Use
  Company Number: PHHY2011BR92392

PATIENT
  Age: 64 Year
  Sex: Male

DRUGS (1)
  1. VOLTAREN [Suspect]
     Indication: PAIN
     Dosage: ONLY ONE APPLICATION
     Dates: start: 20010101

REACTIONS (9)
  - ABSCESS [None]
  - RENAL DISORDER [None]
  - ANURIA [None]
  - NEPHRITIS [None]
  - GLIOBLASTOMA MULTIFORME [None]
  - SEPSIS [None]
  - APPLICATION SITE SWELLING [None]
  - APPLICATION SITE ERYTHEMA [None]
  - DEATH [None]
